FAERS Safety Report 7936301-X (Version None)
Quarter: 2011Q4

REPORT INFORMATION
  Report Type: 
  Country: None (occurrence: None)
  Receive Date: 20111123
  Receipt Date: 20111114
  Transmission Date: 20120403
  Serious: Yes (Hospitalization, Other)
  Sender: FDA-Public Use
  Company Number: US-BAYER-2011-022164

PATIENT
  Age: 28 Year
  Sex: Female
  Weight: 73 kg

DRUGS (3)
  1. YAZ [Suspect]
     Indication: ACNE
     Dosage: UNK
     Dates: start: 20080801, end: 20081109
  2. CITALOPRAM HYDROBROMIDE [Concomitant]
     Indication: ANXIETY
     Dosage: UNK UNK, QD
     Dates: start: 20080401, end: 20090101
  3. YAZ [Suspect]
     Indication: PREMENSTRUAL SYNDROME
     Dosage: UNK
     Dates: start: 20090301, end: 20090701

REACTIONS (13)
  - GROIN PAIN [None]
  - WEIGHT INCREASED [None]
  - SELF ESTEEM DECREASED [None]
  - VENOUS INJURY [None]
  - DEEP VEIN THROMBOSIS [None]
  - FATIGUE [None]
  - OEDEMA PERIPHERAL [None]
  - NERVE COMPRESSION [None]
  - INJURY [None]
  - SKIN DISCOLOURATION [None]
  - PULMONARY EMBOLISM [None]
  - ANXIETY [None]
  - EMOTIONAL DISTRESS [None]
